FAERS Safety Report 22014732 (Version 1)
Quarter: 2023Q1

REPORT INFORMATION
  Report Type: Spontaneous
  Country: US (occurrence: US)
  Receive Date: 20230221
  Receipt Date: 20230221
  Transmission Date: 20230417
  Serious: Yes (Other)
  Sender: FDA-Public Use
  Company Number: US-CIPLA LTD.-2023US00963

PATIENT

DRUGS (2)
  1. WARFARIN [Suspect]
     Active Substance: WARFARIN
     Indication: Coronary artery disease
     Dosage: UNK
     Route: 065
  2. WARFARIN [Suspect]
     Active Substance: WARFARIN
     Indication: Atrial fibrillation

REACTIONS (8)
  - Paraplegia [Recovering/Resolving]
  - Chance fracture [Unknown]
  - Spinal epidural haematoma [Unknown]
  - Kyphosis [Unknown]
  - Spinal cord compression [Unknown]
  - Fall [Unknown]
  - Haemoglobin decreased [Unknown]
  - Anticoagulation drug level above therapeutic [Unknown]
